FAERS Safety Report 4912880-1 (Version None)
Quarter: 2006Q1

REPORT INFORMATION
  Report Type: 
  Country: None (occurrence: None)
  Receive Date: 20060215
  Receipt Date: 20060203
  Transmission Date: 20060701
  Serious: Yes (Hospitalization, Other)
  Sender: FDA-Public Use
  Company Number: FR-BRISTOL-MYERS SQUIBB COMPANY-13275995

PATIENT
  Age: 40 Year
  Sex: Female

DRUGS (3)
  1. VIDEX [Suspect]
     Indication: HIV INFECTION
     Route: 048
     Dates: start: 20030401
  2. VIRAMUNE [Suspect]
     Indication: HIV INFECTION
     Route: 048
     Dates: start: 20030401
  3. KALETRA [Concomitant]
     Indication: HIV INFECTION
     Dates: start: 20030401

REACTIONS (5)
  - ABORTION INDUCED [None]
  - HEPATIC CIRRHOSIS [None]
  - HEPATOSPLENOMEGALY [None]
  - PORTAL HYPERTENSION [None]
  - PREGNANCY [None]
